FAERS Safety Report 8418639-5 (Version None)
Quarter: 2012Q2

REPORT INFORMATION
  Report Type: 
  Country: None (occurrence: None)
  Receive Date: 20120607
  Receipt Date: 20120530
  Transmission Date: 20120825
  Serious: Yes (Death, Hospitalization)
  Sender: FDA-Public Use
  Company Number: US-ELI_LILLY_AND_COMPANY-US201206000116

PATIENT
  Sex: Female

DRUGS (16)
  1. PRISTIQ [Concomitant]
  2. DEXLANSOPRAZOLE [Concomitant]
  3. SYMBYAX [Concomitant]
  4. TRAZODONE HCL [Concomitant]
  5. NEURONTIN [Concomitant]
  6. ASPIRIN [Concomitant]
  7. SEROQUEL [Concomitant]
  8. LORTAB [Concomitant]
  9. PHENERGAN [Concomitant]
  10. FORTEO [Suspect]
     Indication: OSTEOPOROSIS
     Dosage: 20 U, QD
     Dates: start: 20120223
  11. SYMBICORT [Concomitant]
  12. SINGULAIR [Concomitant]
  13. KLONOPIN [Concomitant]
  14. CALCIUM WITH VITAMIN D [Concomitant]
  15. MULTIVITAMIN [Concomitant]
  16. ZANAFLEX [Concomitant]

REACTIONS (9)
  - CARDIAC ARREST [None]
  - DIARRHOEA [None]
  - RESPIRATORY FUME INHALATION DISORDER [None]
  - ASTHENIA [None]
  - EMPHYSEMA [None]
  - LOSS OF CONSCIOUSNESS [None]
  - GALLBLADDER DISORDER [None]
  - CARBON DIOXIDE INCREASED [None]
  - RALES [None]
